FAERS Safety Report 4592197-8 (Version None)
Quarter: 2005Q1

REPORT INFORMATION
  Report Type: 
  Country: None (occurrence: None)
  Receive Date: 20050228
  Receipt Date: 20050216
  Transmission Date: 20050727
  Serious: Yes (Other)
  Sender: FDA-Public Use
  Company Number: GB-JNJFOC-20050204115

PATIENT
  Age: 34 Year
  Sex: Female
  Weight: 89.8 kg

DRUGS (5)
  1. REMICADE [Suspect]
     Indication: RHEUMATOID ARTHRITIS
     Route: 042
  2. BENDROFLUAZIDE [Concomitant]
     Indication: HYPERTENSION
     Route: 049
  3. FELODIPINE [Concomitant]
     Indication: HYPERTENSION
     Route: 049
  4. BISOPROLOL [Concomitant]
     Indication: HYPERTENSION
     Route: 049
  5. METHOTREXATE [Concomitant]
     Indication: RHEUMATOID ARTHRITIS
     Route: 049

REACTIONS (5)
  - BACK PAIN [None]
  - HYPERHIDROSIS [None]
  - HYPERTENSION [None]
  - PALLOR [None]
  - TACHYCARDIA [None]
